FAERS Safety Report 25362536 (Version 1)
Quarter: 2025Q2

REPORT INFORMATION
  Report Type: Spontaneous
  Country: US (occurrence: None)
  Receive Date: 20250523
  Receipt Date: 20250523
  Transmission Date: 20250717
  Serious: Yes (Death)
  Sender: FDA-CTU
  Company Number: None

PATIENT
  Sex: Female

DRUGS (7)
  1. CYCLOSPORINE [Suspect]
     Active Substance: CYCLOSPORINE
     Indication: Liver transplant
     Dates: start: 20230708
  2. AMLODIPINE TAB 5MG [Concomitant]
  3. CITRACAUVITAMIN D [Concomitant]
  4. CITRACAUVITAMIN D [Concomitant]
  5. ELIQUIS [Concomitant]
     Active Substance: APIXABAN
  6. MAGNESIUM TAB 250MG [Concomitant]
  7. PANTOPRAZOLE TAB 40MG [Concomitant]

REACTIONS (1)
  - Death [None]
